FAERS Safety Report 18162912 (Version 2)
Quarter: 2021Q1

REPORT INFORMATION
  Report Type: Other
  Country: CA (occurrence: CA)
  Receive Date: 20200818
  Receipt Date: 20210208
  Transmission Date: 20210419
  Serious: Yes (Death, Life-Threatening, Hospitalization, Other)
  Sender: FDA-Public Use
  Company Number: CA-ASTELLAS-2020US027643

PATIENT
  Age: 41 Year
  Sex: Male

DRUGS (16)
  1. ETHAMBUTOL [Suspect]
     Active Substance: ETHAMBUTOL HYDROCHLORIDE
     Indication: PRODUCT USED FOR UNKNOWN INDICATION
     Dosage: UNK UNK, UNKNOWN FREQ.
     Route: 065
     Dates: start: 201206
  2. AMPHOTERICIN B, LIPOSOME [Suspect]
     Active Substance: AMPHOTERICIN B
     Indication: ANTIFUNGAL TREATMENT
     Dosage: UNK UNK, UNKNOWN FREQ.
     Route: 065
  3. ETANERCEPT [Suspect]
     Active Substance: ETANERCEPT
     Indication: ANKYLOSING SPONDYLITIS
  4. PYRAZINAMIDE. [Suspect]
     Active Substance: PYRAZINAMIDE
     Indication: PRODUCT USED FOR UNKNOWN INDICATION
     Dosage: UNK UNK, UNKNOWN FREQ.
     Route: 065
     Dates: start: 201206
  5. METHOTREXATE. [Concomitant]
     Active Substance: METHOTREXATE
     Indication: PRODUCT USED FOR UNKNOWN INDICATION
     Dosage: UNK UNK, UNKNOWN FREQ.
     Route: 065
  6. ETANERCEPT [Suspect]
     Active Substance: ETANERCEPT
     Indication: PSORIASIS
     Route: 058
     Dates: start: 201112
  7. ISONIAZID. [Suspect]
     Active Substance: ISONIAZID
     Indication: PRODUCT USED FOR UNKNOWN INDICATION
     Dosage: UNK UNK, UNKNOWN FREQ.
     Route: 065
     Dates: start: 201206
  8. METHYLPREDNISOLONE. [Suspect]
     Active Substance: METHYLPREDNISOLONE
     Indication: PRODUCT USED FOR UNKNOWN INDICATION
     Dosage: UNK UNK, UNKNOWN FREQ.
     Route: 065
  9. LEFLUNOMIDE. [Suspect]
     Active Substance: LEFLUNOMIDE
     Indication: ARTHRITIS
     Dosage: UNK UNK, UNKNOWN FREQ.
     Route: 065
  10. CELECOXIB. [Suspect]
     Active Substance: CELECOXIB
     Indication: ARTHRITIS
     Dosage: UNK UNK, UNKNOWN FREQ.
     Route: 065
  11. AZATHIOPRINE. [Concomitant]
     Active Substance: AZATHIOPRINE
     Indication: PRODUCT USED FOR UNKNOWN INDICATION
     Dosage: UNK UNK, UNKNOWN FREQ.
     Route: 065
  12. SULFASALAZINE. [Concomitant]
     Active Substance: SULFASALAZINE
     Indication: PRODUCT USED FOR UNKNOWN INDICATION
     Dosage: UNK UNK, UNKNOWN FREQ.
     Route: 065
  13. DICLOFENAC/MISOPROSTOL [Concomitant]
     Active Substance: DICLOFENAC SODIUM\MISOPROSTOL
     Indication: PRODUCT USED FOR UNKNOWN INDICATION
     Dosage: UNK UNK, UNKNOWN FREQ.
     Route: 065
  14. ACYCLOVIR [ACICLOVIR] [Suspect]
     Active Substance: ACYCLOVIR
     Indication: ANTIVIRAL TREATMENT
     Dosage: UNK UNK, UNKNOWN FREQ.
     Route: 065
  15. RIFAMPICIN [Suspect]
     Active Substance: RIFAMPIN
     Indication: PRODUCT USED FOR UNKNOWN INDICATION
     Dosage: UNK UNK, UNKNOWN FREQ.
     Route: 065
  16. NABUMETONE. [Concomitant]
     Active Substance: NABUMETONE
     Indication: PRODUCT USED FOR UNKNOWN INDICATION
     Dosage: UNK UNK, UNKNOWN FREQ.
     Route: 065

REACTIONS (38)
  - Pulmonary granuloma [Fatal]
  - Viral infection [Fatal]
  - Marrow hyperplasia [Fatal]
  - Splenic infarction [Fatal]
  - Sideroblastic anaemia [Fatal]
  - Splenic embolism [Fatal]
  - Splenomegaly [Fatal]
  - Blood creatinine increased [Fatal]
  - Pulmonary oedema [Fatal]
  - Ankylosing spondylitis [Fatal]
  - Implant site infection [Fatal]
  - Thrombocytopenia [Fatal]
  - Acute kidney injury [Fatal]
  - Diaphragmatic injury [Fatal]
  - Jaundice [Fatal]
  - Renal atrophy [Fatal]
  - Hepatic enzyme increased [Fatal]
  - Haemolytic anaemia [Fatal]
  - Drug ineffective [Fatal]
  - Off label use [Recovered/Resolved]
  - Vitamin B1 decreased [Fatal]
  - Disseminated intravascular coagulation [Fatal]
  - Encephalopathy [Fatal]
  - Generalised oedema [Fatal]
  - Pleural effusion [Fatal]
  - Pneumonia [Fatal]
  - Liver function test abnormal [Fatal]
  - Autoimmune haemolytic anaemia [Fatal]
  - Pancytopenia [Fatal]
  - Mycobacterial infection [Fatal]
  - Granulomatous liver disease [Fatal]
  - Lymphadenopathy [Fatal]
  - Sepsis [Fatal]
  - Upper gastrointestinal haemorrhage [Fatal]
  - Ascites [Fatal]
  - Granuloma [Fatal]
  - Liver disorder [Fatal]
  - Pulseless electrical activity [Fatal]

NARRATIVE: CASE EVENT DATE: 201203
